FAERS Safety Report 12301321 (Version 1)
Quarter: 2016Q2

REPORT INFORMATION
  Report Type: Spontaneous
  Country: US (occurrence: US)
  Receive Date: 20160425
  Receipt Date: 20160425
  Transmission Date: 20160815
  Serious: Yes (Other)
  Sender: FDA-Public Use
  Company Number: US-PFIZER INC-2016224631

PATIENT
  Age: 47 Year
  Sex: Female
  Weight: 144.2 kg

DRUGS (2)
  1. NEURONTIN [Suspect]
     Active Substance: GABAPENTIN
     Dosage: 300 MG, 4X/DAY
     Dates: end: 2014
  2. NEURONTIN [Suspect]
     Active Substance: GABAPENTIN
     Dosage: ONE PILL A DAY
     Dates: start: 2011

REACTIONS (7)
  - Expired product administered [Unknown]
  - Drug ineffective [Unknown]
  - Lyme disease [Unknown]
  - Arthralgia [Unknown]
  - Complex regional pain syndrome [Unknown]
  - Condition aggravated [Unknown]
  - Pain [Unknown]
